FAERS Safety Report 8052475-7 (Version None)
Quarter: 2012Q1

REPORT INFORMATION
  Report Type: 
  Country: None (occurrence: None)
  Receive Date: 20120118
  Receipt Date: 20120112
  Transmission Date: 20120608
  Serious: Yes (Life-Threatening)
  Sender: FDA-Public Use
  Company Number: FR-PFIZER INC-2012008896

PATIENT
  Age: 62 Year
  Sex: Male

DRUGS (5)
  1. PREDNISONE TAB [Concomitant]
     Dosage: UNK
     Dates: start: 20050101
  2. MYCOPHENOLATE MOFETIL (CELLCEPT) [Concomitant]
     Dosage: UNK
     Dates: start: 20050101
  3. VFEND [Suspect]
     Dosage: UNK
     Dates: start: 20050701, end: 20060601
  4. PROGRAF [Concomitant]
     Dosage: UNK
     Dates: start: 20050101
  5. CORTICOSTEROID NOS [Concomitant]
     Indication: TRANSPLANT REJECTION
     Dosage: UNK
     Route: 040
     Dates: start: 20050101

REACTIONS (2)
  - ACTINIC KERATOSIS [None]
  - SQUAMOUS CELL CARCINOMA [None]
